FAERS Safety Report 7206076-0 (Version None)
Quarter: 2010Q4

REPORT INFORMATION
  Report Type: 
  Country: None (occurrence: None)
  Receive Date: 20101229
  Receipt Date: 20101229
  Transmission Date: 20110411
  Serious: Yes (Hospitalization)
  Sender: FDA-Public Use
  Company Number: None

PATIENT
  Sex: Female
  Weight: 43.73 kg

DRUGS (3)
  1. QUADRAMET [Suspect]
     Dosage: .94 ML
  2. ZOMETA [Suspect]
     Dosage: 4 MG
  3. VITAMIN D2 [Suspect]
     Dosage: 3600 MILLION IU

REACTIONS (1)
  - METASTASES TO CENTRAL NERVOUS SYSTEM [None]
